FAERS Safety Report 7148526-4 (Version None)
Quarter: 2010Q4

REPORT INFORMATION
  Report Type: 
  Country: None (occurrence: None)
  Receive Date: 20101123
  Receipt Date: 20101116
  Transmission Date: 20110411
  Serious: Yes (Death, Disabling)
  Sender: FDA-Public Use
  Company Number: 2010MA004583

PATIENT
  Sex: Male

DRUGS (3)
  1. METOCLOPRAMIDE [Suspect]
     Indication: GASTRIC DISORDER
     Dosage: PO
     Route: 048
  2. CON MEDS [Concomitant]
  3. PREV MEDS [Concomitant]

REACTIONS (17)
  - AKATHISIA [None]
  - ANXIETY [None]
  - ASTHENIA [None]
  - DEFORMITY [None]
  - DISABILITY [None]
  - DYSKINESIA [None]
  - ECONOMIC PROBLEM [None]
  - EMOTIONAL DISTRESS [None]
  - EXTRAPYRAMIDAL DISORDER [None]
  - INCORRECT DRUG ADMINISTRATION DURATION [None]
  - INJURY [None]
  - MENTAL DISORDER [None]
  - MOVEMENT DISORDER [None]
  - NERVOUS SYSTEM DISORDER [None]
  - PAIN [None]
  - TARDIVE DYSKINESIA [None]
  - TREMOR [None]
